FAERS Safety Report 20704946 (Version 1)
Quarter: 2022Q2

REPORT INFORMATION
  Report Type: Spontaneous
  Country: US (occurrence: None)
  Receive Date: 20220413
  Receipt Date: 20220413
  Transmission Date: 20220720
  Serious: No
  Sender: FDA-Public Use
  Company Number: None

PATIENT
  Sex: Female

DRUGS (1)
  1. INLYTA [Suspect]
     Active Substance: AXITINIB
     Indication: Renal cancer
     Dosage: 5MG EVERY 12 HOURS ORAL
     Route: 048
     Dates: start: 20211018

REACTIONS (3)
  - Stomatitis [None]
  - Skin ulcer [None]
  - Skin ulcer [None]
